FAERS Safety Report 17542960 (Version 1)
Quarter: 2020Q1

REPORT INFORMATION
  Report Type: Spontaneous
  Country: CA (occurrence: CA)
  Receive Date: 20200316
  Receipt Date: 20200316
  Transmission Date: 20200409
  Serious: Yes (Other)
  Sender: FDA-Public Use
  Company Number: CA-ROCHE-2566909

PATIENT
  Age: 53 Year
  Sex: Female

DRUGS (21)
  1. HUMIRA [Suspect]
     Active Substance: ADALIMUMAB
     Indication: RHEUMATOID ARTHRITIS
     Route: 058
  2. PREDNISONE. [Concomitant]
     Active Substance: PREDNISONE
     Route: 048
  3. HYDROXYCHLOROQUINE [Suspect]
     Active Substance: HYDROXYCHLOROQUINE
     Indication: RHEUMATOID ARTHRITIS
     Route: 065
  4. PREDNISONE. [Concomitant]
     Active Substance: PREDNISONE
     Indication: PRODUCT USED FOR UNKNOWN INDICATION
     Route: 048
  5. TYLENOL [Concomitant]
     Active Substance: ACETAMINOPHEN
     Indication: PRODUCT USED FOR UNKNOWN INDICATION
  6. APO-LEFLUNOMIDE [Suspect]
     Active Substance: LEFLUNOMIDE
     Indication: RHEUMATOID ARTHRITIS
     Route: 065
  7. ENBREL [Suspect]
     Active Substance: ETANERCEPT
     Indication: RHEUMATOID ARTHRITIS
     Route: 058
  8. LEFLUNOMIDE. [Suspect]
     Active Substance: LEFLUNOMIDE
     Indication: RHEUMATOID ARTHRITIS
     Route: 065
  9. PLAQUENIL [Suspect]
     Active Substance: HYDROXYCHLOROQUINE SULFATE
     Indication: RHEUMATOID ARTHRITIS
     Route: 048
  10. ORENCIA [Suspect]
     Active Substance: ABATACEPT
     Indication: RHEUMATOID ARTHRITIS
     Route: 065
  11. REMICADE [Suspect]
     Active Substance: INFLIXIMAB
     Indication: RHEUMATOID ARTHRITIS
     Route: 042
  12. RITUXAN [Suspect]
     Active Substance: RITUXIMAB
     Indication: RHEUMATOID ARTHRITIS
     Route: 041
  13. SIMPONI [Suspect]
     Active Substance: GOLIMUMAB
     Indication: RHEUMATOID ARTHRITIS
     Route: 058
  14. CIMZIA [Suspect]
     Active Substance: CERTOLIZUMAB PEGOL
     Indication: RHEUMATOID ARTHRITIS
     Route: 058
  15. ENBREL [Suspect]
     Active Substance: ETANERCEPT
     Route: 058
  16. HYDROXYCHLOROQUINE SULFATE. [Suspect]
     Active Substance: HYDROXYCHLOROQUINE SULFATE
     Indication: RHEUMATOID ARTHRITIS
     Route: 058
  17. METHOTREXATE. [Suspect]
     Active Substance: METHOTREXATE
     Indication: RHEUMATOID ARTHRITIS
     Route: 048
  18. SULFASALAZINE. [Suspect]
     Active Substance: SULFASALAZINE
     Indication: RHEUMATOID ARTHRITIS
     Route: 065
  19. DEQUALINIUM CHLORIDE [Concomitant]
     Active Substance: DEQUALINIUM CHLORIDE
     Indication: PRODUCT USED FOR UNKNOWN INDICATION
  20. MEFENAMIC ACID. [Concomitant]
     Active Substance: MEFENAMIC ACID
     Indication: PRODUCT USED FOR UNKNOWN INDICATION
  21. PREDNISONE. [Concomitant]
     Active Substance: PREDNISONE
     Route: 048

REACTIONS (12)
  - Peripheral swelling [Recovered/Resolved]
  - Loss of personal independence in daily activities [Recovered/Resolved]
  - Pain in extremity [Recovered/Resolved]
  - Drug intolerance [Recovered/Resolved]
  - Fatigue [Recovered/Resolved]
  - Irritable bowel syndrome [Recovered/Resolved]
  - Musculoskeletal stiffness [Recovered/Resolved]
  - Drug ineffective [Recovered/Resolved]
  - Rheumatoid arthritis [Recovered/Resolved]
  - Stress [Recovered/Resolved]
  - Malaise [Recovered/Resolved]
  - Inflammatory marker increased [Recovered/Resolved]
